FAERS Safety Report 9168847 (Version 2)
Quarter: 2013Q3

REPORT INFORMATION
  Report Type: Report from Study
  Country: AU (occurrence: AU)
  Receive Date: 20130318
  Receipt Date: 20130813
  Transmission Date: 20140515
  Serious: Yes (Other)
  Sender: FDA-Public Use
  Company Number: AU-ROCHE-1203005

PATIENT
  Age: 57 Year
  Sex: Female

DRUGS (7)
  1. ACTEMRA [Suspect]
     Indication: RHEUMATOID ARTHRITIS
     Route: 042
     Dates: start: 20110928
  2. LANTUS [Concomitant]
     Indication: DIABETES MELLITUS
     Dosage: 40 UNITS
     Route: 058
  3. EFFEXOR [Concomitant]
     Indication: DEPRESSION
     Route: 048
  4. FRUSEMIDE [Concomitant]
     Indication: FLUID RETENTION
     Route: 048
  5. SOMAC (AUSTRALIA) [Concomitant]
     Route: 048
  6. CALCITRIOL [Concomitant]
     Indication: BLOOD CALCIUM
     Route: 048
  7. WARFARIN [Concomitant]
     Route: 065

REACTIONS (2)
  - Hepatic enzyme increased [Recovered/Resolved]
  - Hepatic cirrhosis [Not Recovered/Not Resolved]
